FAERS Safety Report 5706170-7 (Version None)
Quarter: 2008Q2

REPORT INFORMATION
  Report Type: 
  Country: None (occurrence: None)
  Receive Date: 20080415
  Receipt Date: 20080403
  Transmission Date: 20081010
  Serious: Yes (Death)
  Sender: FDA-Public Use
  Company Number: JP-PFIZER INC-2008030219

PATIENT
  Sex: Female
  Weight: 46 kg

DRUGS (22)
  1. ZYVOX [Suspect]
     Indication: STAPHYLOCOCCAL INFECTION
     Route: 042
     Dates: start: 20080305, end: 20080305
  2. ZYVOX [Suspect]
     Dosage: DAILY DOSE:1200MG
     Dates: start: 20080306, end: 20080307
  3. ZYVOX [Suspect]
     Dosage: DAILY DOSE:600
     Dates: start: 20080309, end: 20080309
  4. MELLARIL [Concomitant]
     Route: 048
     Dates: start: 20080214, end: 20080307
  5. ALEVIATIN [Concomitant]
     Route: 048
     Dates: start: 20080211, end: 20080306
  6. TAVEGYL [Concomitant]
     Route: 048
     Dates: start: 20080225, end: 20080306
  7. TALION [Concomitant]
     Route: 048
     Dates: start: 20080225, end: 20080306
  8. GASTER OD [Concomitant]
     Route: 048
     Dates: start: 20080225, end: 20080307
  9. PREDONINE [Concomitant]
     Route: 048
     Dates: start: 20080228, end: 20080309
  10. PREDONINE [Concomitant]
     Route: 042
     Dates: start: 20080308, end: 20080309
  11. BLOOD AND RELATED PRODUCTS [Concomitant]
     Route: 042
     Dates: start: 20080303, end: 20080305
  12. MACROGOL [Concomitant]
     Route: 062
     Dates: start: 20080226, end: 20080309
  13. HYALEIN [Concomitant]
     Route: 031
     Dates: start: 20080228, end: 20080309
  14. FLUMETHOLON [Concomitant]
     Route: 031
     Dates: start: 20080228, end: 20080309
  15. SULFADIAZINE [Concomitant]
     Route: 062
     Dates: start: 20080301, end: 20080309
  16. MUCOSTA [Concomitant]
     Route: 048
     Dates: start: 20080307, end: 20080309
  17. GEBEN [Concomitant]
     Route: 042
     Dates: start: 20080308, end: 20080309
  18. AMICALIQ [Concomitant]
     Route: 042
     Dates: start: 20080303, end: 20080309
  19. SODIUM CHLORIDE [Concomitant]
     Route: 042
     Dates: start: 20080308, end: 20080309
  20. SODIUM CHLORIDE [Concomitant]
     Dates: start: 20080309, end: 20080309
  21. TIENAM [Concomitant]
     Route: 042
     Dates: start: 20080309, end: 20080309
  22. DOPAMINE HYDROCHLORIDE [Concomitant]
     Route: 042
     Dates: start: 20080309, end: 20080309

REACTIONS (1)
  - DEATH [None]
